FAERS Safety Report 23071119 (Version 3)
Quarter: 2024Q1

REPORT INFORMATION
  Report Type: Spontaneous
  Country: JP (occurrence: JP)
  Receive Date: 20231016
  Receipt Date: 20240131
  Transmission Date: 20240410
  Serious: Yes (Other)
  Sender: FDA-Public Use
  Company Number: JP-HORIZON THERAPEUTICS-HZN-2023-007880

PATIENT

DRUGS (7)
  1. BUPHENYL [Suspect]
     Active Substance: SODIUM PHENYLBUTYRATE
     Indication: Argininosuccinate lyase deficiency
     Dosage: 500 MG, BID
     Route: 048
     Dates: start: 20170126, end: 20170322
  2. BUPHENYL [Suspect]
     Active Substance: SODIUM PHENYLBUTYRATE
     Dosage: 1000 MG, BID
     Route: 048
     Dates: start: 20170323, end: 20170927
  3. BUPHENYL [Suspect]
     Active Substance: SODIUM PHENYLBUTYRATE
     Dosage: 1500 MG, BID
     Route: 048
     Dates: start: 20170928
  4. Argi u [Concomitant]
     Dosage: UNK
  5. LEVOCARNITINE HYDROCHLORIDE [Concomitant]
     Active Substance: LEVOCARNITINE HYDROCHLORIDE
     Dosage: UNK
  6. ISOSORBIDE DINITRATE [Concomitant]
     Active Substance: ISOSORBIDE DINITRATE
     Dosage: UNK
  7. ONEALFA [Concomitant]
     Active Substance: ALFACALCIDOL

REACTIONS (2)
  - Myocardial infarction [Recovering/Resolving]
  - Prinzmetal angina [Recovering/Resolving]
